FAERS Safety Report 7965666-8 (Version None)
Quarter: 2011Q4

REPORT INFORMATION
  Report Type: 
  Country: None (occurrence: None)
  Receive Date: 20111208
  Receipt Date: 20111128
  Transmission Date: 20120403
  Serious: Yes (Hospitalization)
  Sender: FDA-Public Use
  Company Number: FR-NOVOPROD-314977

PATIENT
  Age: 72 Year
  Sex: Female

DRUGS (5)
  1. RAMIPRIL [Concomitant]
     Dosage: 2.5 MG, QD
     Route: 048
     Dates: start: 20090909, end: 20100720
  2. METFORMIN HCL [Concomitant]
     Indication: TYPE 2 DIABETES MELLITUS
     Dosage: UNK
     Route: 048
     Dates: end: 20100720
  3. GLUCOPHAGE [Concomitant]
     Dosage: 3 G, QD
     Route: 048
     Dates: start: 20090909, end: 20110720
  4. INSULATARD NPH HUMAN [Suspect]
     Indication: TYPE 2 DIABETES MELLITUS
     Dosage: UK/SC
     Route: 058
     Dates: end: 20100720
  5. ISOPTIN [Concomitant]
     Dosage: 240 MG, QD
     Route: 048
     Dates: end: 20100720

REACTIONS (8)
  - LACTIC ACIDOSIS [None]
  - OVERDOSE [None]
  - ANAEMIA MACROCYTIC [None]
  - VITAMIN B12 DEFICIENCY [None]
  - HYPOGLYCAEMIA [None]
  - HYPERGLYCAEMIA [None]
  - RENAL FAILURE [None]
  - HYPOGLYCAEMIC COMA [None]
